FAERS Safety Report 7024063-2 (Version None)
Quarter: 2010Q4

REPORT INFORMATION
  Report Type: 
  Country: None (occurrence: None)
  Receive Date: 20101001
  Receipt Date: 20100921
  Transmission Date: 20110411
  Serious: Yes (Other)
  Sender: FDA-Public Use
  Company Number: US-ASTRAZENECA-2010SE24297

PATIENT
  Age: 52 Year
  Sex: Female

DRUGS (12)
  1. SYMBICORT [Suspect]
     Dosage: 160/4.5, TWO PUFFS
     Route: 055
     Dates: start: 20090101, end: 20100501
  2. PREDNISONE [Concomitant]
  3. XANAX [Concomitant]
     Dosage: 1-1/2 TABLETS AT BED TIME
     Route: 048
  4. BENADRYL [Concomitant]
     Route: 048
  5. MOTRIN [Concomitant]
     Route: 048
  6. FIORINAL [Concomitant]
  7. TORADOL [Concomitant]
  8. ALBUTEROL [Concomitant]
     Dosage: 2 PUFFS AS  NEEDED
     Route: 055
  9. DIFLUCAN [Concomitant]
     Route: 048
  10. ESTRACE [Concomitant]
     Route: 061
  11. VOLTARINE [Concomitant]
  12. GEMELLI [Concomitant]

REACTIONS (49)
  - ABDOMINAL DISCOMFORT [None]
  - AGGRESSION [None]
  - AMNESIA [None]
  - ANGER [None]
  - ARTHRALGIA [None]
  - ATAXIA [None]
  - BALANCE DISORDER [None]
  - BLOOD CALCIUM INCREASED [None]
  - BLOOD POTASSIUM DECREASED [None]
  - BLOOD PRESSURE INCREASED [None]
  - BURNING SENSATION [None]
  - COUGH [None]
  - CRYING [None]
  - DECREASED APPETITE [None]
  - DRY EYE [None]
  - DRY MOUTH [None]
  - DYSARTHRIA [None]
  - DYSGRAPHIA [None]
  - EXAGGERATED STARTLE RESPONSE [None]
  - FALL [None]
  - FATIGUE [None]
  - FEELING ABNORMAL [None]
  - FLANK PAIN [None]
  - GAIT DISTURBANCE [None]
  - HEART RATE INCREASED [None]
  - HYPERHIDROSIS [None]
  - HYPERSENSITIVITY [None]
  - INCREASED BRONCHIAL SECRETION [None]
  - INSOMNIA [None]
  - LOGORRHOEA [None]
  - MALAISE [None]
  - MEMORY IMPAIRMENT [None]
  - MENINGIOMA [None]
  - MOTION SICKNESS [None]
  - MOTOR DYSFUNCTION [None]
  - MUSCULOSKELETAL PAIN [None]
  - MUSCULOSKELETAL STIFFNESS [None]
  - MYALGIA [None]
  - NAUSEA [None]
  - NERVOUSNESS [None]
  - PAIN [None]
  - PAIN IN JAW [None]
  - PERIPHERAL COLDNESS [None]
  - PROTEIN TOTAL DECREASED [None]
  - PSYCHOTIC DISORDER [None]
  - RASH [None]
  - TENSION [None]
  - TREMOR [None]
  - WEIGHT DECREASED [None]
